FAERS Safety Report 19039649 (Version 1)
Quarter: 2021Q1

REPORT INFORMATION
  Report Type: Report from Study
  Country: CA (occurrence: CA)
  Receive Date: 20210322
  Receipt Date: 20210322
  Transmission Date: 20210420
  Serious: Yes (Other)
  Sender: FDA-Public Use
  Company Number: CA-SA-2021SA094436

PATIENT
  Age: 70 Year
  Sex: Female

DRUGS (4)
  1. ATORVASTATIN [Concomitant]
     Active Substance: ATORVASTATIN
     Dosage: 80MG
  2. AGALSIDASE BETA [Suspect]
     Active Substance: AGALSIDASE BETA
     Indication: FABRY^S DISEASE
     Dosage: 70 MG, QOW
     Route: 041
     Dates: start: 20201015, end: 20210316
  3. XARELTO [Concomitant]
     Active Substance: RIVAROXABAN
     Dosage: 20MG
  4. TYLENOL [Concomitant]
     Active Substance: ACETAMINOPHEN
     Indication: PREMEDICATION
     Dosage: 500 MG (2 TABS)
     Route: 048

REACTIONS (3)
  - Injection site mass [Unknown]
  - Injection site pain [Unknown]
  - Vein rupture [Unknown]

NARRATIVE: CASE EVENT DATE: 20210316
